FAERS Safety Report 5012372-8 (Version None)
Quarter: 2006Q2

REPORT INFORMATION
  Report Type: 
  Country: None (occurrence: None)
  Receive Date: 20060414
  Receipt Date: 20060221
  Transmission Date: 20061013
  Serious: No
  Sender: FDA-Public Use
  Company Number: 2006SP000869

PATIENT
  Age: 35 Year
  Sex: Male
  Weight: 102.0593 kg

DRUGS (2)
  1. LUNESTA [Suspect]
     Indication: INSOMNIA
     Dosage: SEE IMAGES
     Route: 048
     Dates: start: 20060201, end: 20060201
  2. LUNESTA [Suspect]
     Indication: INSOMNIA
     Dosage: SEE IMAGES
     Route: 048
     Dates: start: 20060201

REACTIONS (3)
  - DRUG INEFFECTIVE [None]
  - INSOMNIA [None]
  - NAUSEA [None]
